FAERS Safety Report 6812094-4 (Version None)
Quarter: 2010Q2

REPORT INFORMATION
  Report Type: 
  Country: None (occurrence: None)
  Receive Date: 20100628
  Receipt Date: 20100617
  Transmission Date: 20101027
  Serious: Yes (Death)
  Sender: FDA-Public Use
  Company Number: 2010MA000073

PATIENT
  Sex: Female

DRUGS (13)
  1. AMLODIPINE BESYLATE [Suspect]
     Dosage: 10 MG; QD; PO
     Route: 048
  2. CLOPIDOGREL [Concomitant]
  3. ACETYLSALICYLIC ACID [Concomitant]
  4. ... [Concomitant]
  5. SPIRONOLACTONE [Concomitant]
  6. CARBOCISTEINE [Concomitant]
  7. ALBUTEROL [Concomitant]
  8. ZOPICLONE [Concomitant]
  9. TIOTROPIUM BROMIDE [Concomitant]
  10. SYMBICORT [Concomitant]
  11. FLUOXETINE [Concomitant]
  12. LUCENTIS [Concomitant]
  13. PREV MEDS [Concomitant]

REACTIONS (2)
  - LEFT VENTRICULAR FAILURE [None]
  - MYOCARDIAL ISCHAEMIA [None]
